FAERS Safety Report 11216590 (Version 1)
Quarter: 2015Q2

REPORT INFORMATION
  Report Type: Spontaneous
  Country: IT (occurrence: FR)
  Receive Date: 20150624
  Receipt Date: 20150624
  Transmission Date: 20150821
  Serious: Yes (Other)
  Sender: FDA-Public Use
  Company Number: IT-SIGMA-TAU US-2015STPI000428

PATIENT
  Age: 28 Year
  Sex: Female

DRUGS (5)
  1. OXCARBAZEPINE TEVA [Concomitant]
     Indication: OLIGODENDROGLIOMA
     Dosage: 900 MG, UNK
     Route: 048
     Dates: start: 201412
  2. VALPROIC ACID. [Concomitant]
     Active Substance: VALPROIC ACID
     Indication: EPILEPSY
     Dosage: UNK
     Route: 065
     Dates: start: 201411
  3. MUPHORAN [Suspect]
     Active Substance: FOTEMUSTINE
     Indication: OLIGODENDROGLIOMA
     Dosage: 1020 MG, UNK
     Route: 042
     Dates: start: 201008, end: 201104
  4. ONCOVIN [Suspect]
     Active Substance: VINCRISTINE SULFATE
     Indication: OLIGODENDROGLIOMA
     Dosage: 14.6 MG, UNK
     Route: 042
     Dates: start: 201008, end: 201104
  5. MATULANE [Suspect]
     Active Substance: PROCARBAZINE HYDROCHLORIDE
     Indication: OLIGODENDROGLIOMA
     Dosage: 60 MG/M2, QD
     Route: 048
     Dates: start: 201008, end: 201104

REACTIONS (2)
  - Hot flush [Unknown]
  - Premature menopause [Unknown]

NARRATIVE: CASE EVENT DATE: 201412
